FAERS Safety Report 20772914 (Version 2)
Quarter: 2022Q2

REPORT INFORMATION
  Report Type: Other
  Country: BR (occurrence: None)
  Receive Date: 20220502
  Receipt Date: 20220609
  Transmission Date: 20220721
  Serious: Yes (Other)
  Sender: FDA-Public Use
  Company Number: BR-ROCHE-3087285

PATIENT
  Sex: Female
  Weight: 88 kg

DRUGS (2)
  1. MABTHERA [Suspect]
     Active Substance: RITUXIMAB
     Indication: Rheumatoid arthritis
     Dosage: 2 AMPOULES
     Route: 042
  2. EPINEPHRINE [Concomitant]
     Active Substance: EPINEPHRINE
     Route: 030

REACTIONS (1)
  - Laryngeal oedema [Recovered/Resolved]
